FAERS Safety Report 6373509-1 (Version None)
Quarter: 2009Q3

REPORT INFORMATION
  Report Type: 
  Country: None (occurrence: None)
  Receive Date: 20090924
  Receipt Date: 20090218
  Transmission Date: 20100115
  Serious: No
  Sender: FDA-Public Use
  Company Number: US-ASTRAZENECA-2009UW04639

PATIENT
  Age: 51 Year
  Sex: Female

DRUGS (3)
  1. SEROQUEL XR [Suspect]
     Indication: SLEEP DISORDER
     Route: 048
  2. ATIVAN [Concomitant]
  3. EFFEXOR [Concomitant]

REACTIONS (1)
  - FEELING ABNORMAL [None]
